FAERS Safety Report 4846059-9 (Version None)
Quarter: 2005Q4

REPORT INFORMATION
  Report Type: 
  Country: None (occurrence: None)
  Receive Date: 20051130
  Receipt Date: 20051121
  Transmission Date: 20060501
  Serious: Yes (Other)
  Sender: FDA-Public Use
  Company Number: 200514650BCC

PATIENT
  Age: 64 Year
  Sex: Male
  Weight: 85.2762 kg

DRUGS (1)
  1. ALEVE [Suspect]
     Indication: ARTHRALGIA
     Dosage: 220 MG, BID, ORAL
     Route: 048

REACTIONS (1)
  - BLOOD PRESSURE INCREASED [None]
